FAERS Safety Report 7266998-1 (Version None)
Quarter: 2011Q1

REPORT INFORMATION
  Report Type: 
  Country: None (occurrence: None)
  Receive Date: 20110201
  Receipt Date: 20110125
  Transmission Date: 20110831
  Serious: No
  Sender: FDA-Public Use
  Company Number: US-JNJFOC-20110107224

PATIENT
  Sex: Male
  Weight: 70.31 kg

DRUGS (8)
  1. METOPROLOL TARTRATE [Concomitant]
     Indication: HYPERTENSION
     Route: 048
  2. TIZANIDINE [Concomitant]
     Indication: PAIN
     Dosage: 1 TO 2 TABLETS AS NEEDED ORALLY
     Route: 048
  3. LYRICA [Concomitant]
     Indication: PAIN
     Route: 048
  4. PLAVIX [Concomitant]
     Indication: CARDIAC DISORDER
     Route: 048
  5. SIMVASTATIN [Concomitant]
     Indication: BLOOD CHOLESTEROL
     Route: 048
  6. METFORMIN [Concomitant]
     Indication: DIABETES MELLITUS
     Route: 048
  7. FENTANYL-100 [Suspect]
     Indication: BACK PAIN
     Route: 062
  8. HYDROCODONE [Concomitant]
     Indication: PAIN
     Dosage: AS NEEDED
     Route: 048

REACTIONS (3)
  - DIZZINESS [None]
  - INAPPROPRIATE SCHEDULE OF DRUG ADMINISTRATION [None]
  - HYPOVENTILATION [None]
